FAERS Safety Report 7379841-7 (Version None)
Quarter: 2011Q1

REPORT INFORMATION
  Report Type: 
  Country: None (occurrence: None)
  Receive Date: 20110329
  Receipt Date: 20110315
  Transmission Date: 20110831
  Serious: Yes (Other)
  Sender: FDA-Public Use
  Company Number: JP-CELGENEUS-087-21880-11031775

PATIENT
  Sex: Male

DRUGS (9)
  1. MERISLON [Concomitant]
     Dosage: 18 MILLIGRAM
     Route: 048
  2. REVLIMID [Suspect]
     Indication: MULTIPLE MYELOMA
     Dosage: 10 MILLIGRAM
     Route: 048
     Dates: start: 20101110, end: 20101124
  3. LENADEX [Suspect]
     Indication: MULTIPLE MYELOMA
     Dosage: 20 MILLIGRAM
     Route: 048
     Dates: start: 20101111, end: 20101119
  4. MUCOSTA [Concomitant]
     Indication: PROPHYLAXIS
     Dosage: 100 MILLIGRAM
     Route: 048
  5. TAKEPRON [Concomitant]
     Indication: PROPHYLAXIS
     Dosage: 15 MILLIGRAM
     Route: 048
  6. ZYLORIC [Concomitant]
     Dosage: 100 MILLIGRAM
     Route: 048
  7. MYCOSYST [Concomitant]
     Indication: PROPHYLAXIS
     Dosage: 100 MILLIGRAM
     Route: 048
  8. ASPIRIN [Concomitant]
     Indication: PROPHYLAXIS
     Dosage: 100 MILLIGRAM
     Route: 048
  9. MAGMITT [Concomitant]
     Dosage: 1980 MILLIGRAM
     Route: 048

REACTIONS (4)
  - HERPES ZOSTER [None]
  - NEUTROPENIA [None]
  - DELIRIUM [None]
  - MALAISE [None]
